FAERS Safety Report 4708769-3 (Version None)
Quarter: 2005Q3

REPORT INFORMATION
  Report Type: 
  Country: None (occurrence: None)
  Receive Date: 20050705
  Receipt Date: 20050622
  Transmission Date: 20060218
  Serious: Yes (Other)
  Sender: FDA-Public Use
  Company Number: 2005092257

PATIENT
  Age: 81 Year
  Sex: Female

DRUGS (6)
  1. METHYLPREDNISOLONE [Suspect]
     Indication: NON-HODGKIN'S LYMPHOMA
     Dosage: 500 MG
     Dates: start: 20050411
  2. RITUXIMAB (RITUXIMAB) [Suspect]
     Indication: NON-HODGKIN'S LYMPHOMA
     Dosage: 600 MG
     Dates: start: 20040701
  3. IFOSFAMIDE [Suspect]
     Indication: NON-HODGKIN'S LYMPHOMA
     Dosage: 1000 MG, INTRAVENOUS
     Route: 042
     Dates: start: 20050411
  4. ETOPOSIDE [Suspect]
     Indication: NON-HODGKIN'S LYMPHOMA
     Dosage: 80 MG
     Dates: start: 20050411
  5. METHOTREXATE [Suspect]
     Indication: NON-HODGKIN'S LYMPHOMA
     Dosage: 30 MG
     Dates: start: 20050411
  6. CARBOPLATIN [Suspect]
     Indication: NON-HODGKIN'S LYMPHOMA
     Dosage: 300 MG, INTRAVENOUS
     Route: 042
     Dates: start: 20050411

REACTIONS (3)
  - DECREASED APPETITE [None]
  - DIFFUSE LARGE B-CELL LYMPHOMA RECURRENT [None]
  - GASTRIC PERFORATION [None]
